FAERS Safety Report 9221552 (Version 1)
Quarter: 2013Q2

REPORT INFORMATION
  Report Type: Spontaneous
  Country: US (occurrence: US)
  Receive Date: 20130410
  Receipt Date: 20130410
  Transmission Date: 20140414
  Serious: No
  Sender: FDA-Public Use
  Company Number: US-009507513-1304USA000681

PATIENT
  Sex: Male

DRUGS (1)
  1. PROPECIA [Suspect]
     Indication: ANDROGENETIC ALOPECIA
     Dosage: UNK
     Route: 048
     Dates: start: 199903, end: 201203

REACTIONS (8)
  - Confusional state [Not Recovered/Not Resolved]
  - Erectile dysfunction [Not Recovered/Not Resolved]
  - Depression [Not Recovered/Not Resolved]
  - Libido decreased [Not Recovered/Not Resolved]
  - Testicular pain [Not Recovered/Not Resolved]
  - Rash pruritic [Not Recovered/Not Resolved]
  - Alopecia [Not Recovered/Not Resolved]
  - Wrong technique in drug usage process [Unknown]
